FAERS Safety Report 11453568 (Version 1)
Quarter: 2015Q3

REPORT INFORMATION
  Report Type: Spontaneous
  Country: US (occurrence: US)
  Receive Date: 20150831
  Receipt Date: 20150831
  Transmission Date: 20151125
  Serious: No
  Sender: FDA-Public Use
  Company Number: US-ELI_LILLY_AND_COMPANY-US200912001057

PATIENT
  Age: 58 Year
  Sex: Female

DRUGS (2)
  1. CYMBALTA [Suspect]
     Active Substance: DULOXETINE HYDROCHLORIDE
     Indication: BIPOLAR DISORDER
     Dosage: 60 MG, DAILY (1/D)
     Route: 048
     Dates: start: 2006
  2. CYMBALTA [Suspect]
     Active Substance: DULOXETINE HYDROCHLORIDE
     Dosage: 600 MG, OTHER
     Route: 048
     Dates: start: 20091102, end: 20091102

REACTIONS (7)
  - Abnormal behaviour [Not Recovered/Not Resolved]
  - Off label use [Not Recovered/Not Resolved]
  - Weight decreased [Not Recovered/Not Resolved]
  - Hostility [Not Recovered/Not Resolved]
  - Intentional overdose [Recovered/Resolved]
  - Anger [Unknown]
  - Intentional product misuse [Recovered/Resolved]

NARRATIVE: CASE EVENT DATE: 2006
